FAERS Safety Report 21298184 (Version 1)
Quarter: 2022Q3

REPORT INFORMATION
  Report Type: Spontaneous
  Country: None (occurrence: JP)
  Receive Date: 20220906
  Receipt Date: 20220906
  Transmission Date: 20221026
  Serious: Yes (Life-Threatening, Hospitalization, Other)
  Sender: FDA-Public Use
  Company Number: JP-Breckenridge Pharmaceutical, Inc.-2132576

PATIENT
  Age: 73 Year
  Sex: Female

DRUGS (8)
  1. LEVETIRACETAM [Suspect]
     Active Substance: LEVETIRACETAM
     Indication: Epilepsy
     Route: 048
  2. LANSOPRAZOLE [Concomitant]
     Active Substance: LANSOPRAZOLE
  3. bio-three (CLOSTRIDIUM BUTYRICUM COMBINED DRUG) [Concomitant]
  4. DIPHENIDOL HYDROCHLORIDE [Concomitant]
     Active Substance: DIPHENIDOL HYDROCHLORIDE
  5. adetphos 10% (ADENOSINE TRIPHOSPHATE DISODIUM HYDRATE) [Concomitant]
  6. MAGNESIUM OXIDE [Concomitant]
     Active Substance: MAGNESIUM OXIDE
  7. LEVOFLOXACIN [Concomitant]
     Active Substance: LEVOFLOXACIN
     Route: 047
  8. diquas 3% (DIQUAFOSOL SODIUM) [Concomitant]
     Route: 047

REACTIONS (5)
  - Epilepsy [Unknown]
  - Hemiplegia [Unknown]
  - Therapeutic product effect incomplete [Unknown]
  - Sensory disturbance [Unknown]
  - Postictal paralysis [Unknown]
